FAERS Safety Report 23156708 (Version 1)
Quarter: 2023Q4

REPORT INFORMATION
  Report Type: Spontaneous
  Country: ES (occurrence: ES)
  Receive Date: 20231107
  Receipt Date: 20231107
  Transmission Date: 20240110
  Serious: Yes (Other)
  Sender: FDA-Public Use
  Company Number: ES-JNJFOC-20231107279

PATIENT

DRUGS (2)
  1. IMBRUVICA [Suspect]
     Active Substance: IBRUTINIB
     Indication: Chronic lymphocytic leukaemia
     Route: 048
  2. ACALABRUTINIB [Suspect]
     Active Substance: ACALABRUTINIB
     Indication: Chronic lymphocytic leukaemia
     Route: 065

REACTIONS (12)
  - Acute coronary syndrome [Unknown]
  - Febrile neutropenia [Unknown]
  - Arthralgia [Unknown]
  - Petechiae [Unknown]
  - Haematoma [Unknown]
  - Adverse event [Unknown]
  - Urinary tract infection [Unknown]
  - Diarrhoea [Unknown]
  - Haemorrhage [Unknown]
  - Ventricular tachycardia [Unknown]
  - Hypertension [Unknown]
  - Herpes virus infection [Unknown]
